FAERS Safety Report 7049472-7 (Version None)
Quarter: 2010Q4

REPORT INFORMATION
  Report Type: 
  Country: None (occurrence: None)
  Receive Date: 20101012
  Receipt Date: 20100927
  Transmission Date: 20110411
  Serious: Yes (Hospitalization, Other)
  Sender: FDA-Public Use
  Company Number: AUR-APL-2010-02384

PATIENT
  Age: 39 Year
  Sex: Female
  Weight: 60.33 kg

DRUGS (4)
  1. RISPERIDONE [Suspect]
     Dosage: 2-4MG-DAILY-ORAL
     Route: 048
     Dates: start: 20100714, end: 20100803
  2. RISPERDAL CONSTA [Suspect]
     Indication: SCHIZOPHRENIA, PARANOID TYPE
     Dosage: 25MG-EVERY-2WKS-IM
     Route: 030
     Dates: start: 20100720, end: 20100803
  3. CITALOPRAM [Concomitant]
  4. QUETIAPINE [Concomitant]

REACTIONS (7)
  - DRUG EXPOSURE BEFORE PREGNANCY [None]
  - HEAD TITUBATION [None]
  - MALAISE [None]
  - MUSCULOSKELETAL STIFFNESS [None]
  - NAUSEA [None]
  - PREGNANCY [None]
  - TREMOR [None]
